FAERS Safety Report 6848214-5 (Version None)
Quarter: 2010Q3

REPORT INFORMATION
  Report Type: 
  Country: None (occurrence: None)
  Receive Date: 20100716
  Receipt Date: 20100709
  Transmission Date: 20110219
  Serious: Yes (Hospitalization)
  Sender: FDA-Public Use
  Company Number: B0665798A

PATIENT
  Sex: Female

DRUGS (5)
  1. LANOXIN [Suspect]
     Indication: ATRIAL FIBRILLATION
     Dosage: .125MG PER DAY
     Route: 048
     Dates: start: 20100101, end: 20100701
  2. PRISMA [Concomitant]
  3. LASIX [Concomitant]
     Dosage: 50MG PER DAY
     Route: 048
  4. BISOPROLOL [Concomitant]
  5. OMEPRAZEN [Concomitant]
     Dosage: 20MG PER DAY
     Route: 048

REACTIONS (4)
  - BRADYCARDIA [None]
  - HYPOKALAEMIA [None]
  - RENAL FAILURE CHRONIC [None]
  - THERAPEUTIC AGENT TOXICITY [None]
